FAERS Safety Report 19086537 (Version 5)
Quarter: 2023Q1

REPORT INFORMATION
  Report Type: Spontaneous
  Country: US (occurrence: US)
  Receive Date: 20210402
  Receipt Date: 20230110
  Transmission Date: 20230417
  Serious: Yes (Other)
  Sender: FDA-Public Use
  Company Number: US-PFIZER INC-2020042454

PATIENT
  Age: 69 Year
  Sex: Male

DRUGS (2)
  1. XELJANZ [Suspect]
     Active Substance: TOFACITINIB CITRATE
     Dosage: 5 MG
  2. XELJANZ [Suspect]
     Active Substance: TOFACITINIB CITRATE
     Dosage: 10 MG

REACTIONS (7)
  - Lymphoma [Unknown]
  - Mitral valve disease [Unknown]
  - Cardiac disorder [Unknown]
  - Neck pain [Unknown]
  - Inflammation [Unknown]
  - Mobility decreased [Unknown]
  - Peripheral swelling [Unknown]
